FAERS Safety Report 4437622-8 (Version None)
Quarter: 2004Q3

REPORT INFORMATION
  Report Type: 
  Country: None (occurrence: None)
  Receive Date: 20040827
  Receipt Date: 20040819
  Transmission Date: 20050211
  Serious: Yes (Hospitalization)
  Sender: FDA-Public Use
  Company Number: 2004-07-0071

PATIENT
  Age: 24 Year
  Sex: Female
  Weight: 60 kg

DRUGS (19)
  1. CLARITIN [Suspect]
     Indication: RHINITIS ALLERGIC
     Dosage: 10 MG ORAL
     Route: 048
     Dates: start: 20040203, end: 20040505
  2. CELESTAMINE TAB [Suspect]
     Indication: RHINITIS ALLERGIC
     Dosage: 1 TAB ORAL
     Route: 048
     Dates: start: 20040210, end: 20040503
  3. RISPERDAL [Concomitant]
  4. ZYPREXA [Concomitant]
  5. EURODIN [Concomitant]
  6. ROHYPNOL [Concomitant]
  7. VEGETAMIN [Concomitant]
  8. LORAZEPAM [Concomitant]
  9. DEPAS [Concomitant]
  10. HIRNAMIN [Concomitant]
  11. PROMETHAZINE HCL [Concomitant]
  12. AKINETON [Concomitant]
  13. PRIMPERAN INJ [Concomitant]
  14. PURSENNID [Concomitant]
  15. SELBEX [Concomitant]
  16. VOLTAREN [Concomitant]
  17. KETOPROFEN [Concomitant]
  18. ERYTHROCIN [Suspect]
     Indication: RHINITIS ALLERGIC
     Dosage: 400 MG ORAL
     Route: 048
     Dates: start: 20040210, end: 20040405
  19. LUVOX [Suspect]
     Indication: DEPRESSIVE SYMPTOM
     Dosage: 150 MG ORAL
     Route: 048
     Dates: start: 20030703, end: 20040506

REACTIONS (10)
  - ALANINE AMINOTRANSFERASE INCREASED [None]
  - ASPARTATE AMINOTRANSFERASE INCREASED [None]
  - BACK PAIN [None]
  - BLOOD ALKALINE PHOSPHATASE INCREASED [None]
  - BLOOD BILIRUBIN INCREASED [None]
  - BLOOD LACTATE DEHYDROGENASE INCREASED [None]
  - CHOLELITHIASIS [None]
  - DRUG INTERACTION [None]
  - GAMMA-GLUTAMYLTRANSFERASE INCREASED [None]
  - HEPATIC FUNCTION ABNORMAL [None]
